APPROVED DRUG PRODUCT: METHOTREXATE SODIUM
Active Ingredient: METHOTREXATE SODIUM
Strength: EQ 25MG BASE/ML
Dosage Form/Route: INJECTABLE;INJECTION
Application: A088648 | Product #001
Applicant: NORBROOK LABORATORIES LTD
Approved: May 9, 1986 | RLD: No | RS: No | Type: DISCN